FAERS Safety Report 5762890-X (Version None)
Quarter: 2008Q2

REPORT INFORMATION
  Report Type: 
  Country: None (occurrence: None)
  Receive Date: 20080609
  Receipt Date: 20080530
  Transmission Date: 20081010
  Serious: Yes (Hospitalization)
  Sender: FDA-Public Use
  Company Number: FR-AVENTIS-200812024FR

PATIENT
  Age: 34 Year
  Sex: Female

DRUGS (16)
  1. OFLOCET                            /00731801/ [Suspect]
     Indication: PSEUDOMEMBRANOUS COLITIS
     Route: 042
     Dates: start: 20080113, end: 20080114
  2. FLAGYL [Suspect]
     Indication: PSEUDOMEMBRANOUS COLITIS
     Route: 048
     Dates: start: 20080113, end: 20080119
  3. MORPHINE AGUETTANT [Suspect]
     Indication: DRUG USE FOR UNKNOWN INDICATION
     Route: 042
     Dates: start: 20080113, end: 20080120
  4. MOPRAL [Suspect]
     Indication: DRUG USE FOR UNKNOWN INDICATION
     Route: 042
     Dates: start: 20080113, end: 20080120
  5. VITAMINE K [Suspect]
     Indication: DRUG USE FOR UNKNOWN INDICATION
     Route: 042
     Dates: start: 20080113, end: 20080128
  6. ATARAX [Suspect]
     Indication: DRUG USE FOR UNKNOWN INDICATION
     Route: 042
     Dates: start: 20080113, end: 20080202
  7. LYSANXIA [Suspect]
     Indication: DRUG USE FOR UNKNOWN INDICATION
     Dates: start: 20080113, end: 20080114
  8. ACTRAPID [Suspect]
     Indication: DRUG USE FOR UNKNOWN INDICATION
     Route: 042
     Dates: start: 20080113, end: 20080202
  9. ACETAMINOPHEN [Concomitant]
     Indication: DRUG USE FOR UNKNOWN INDICATION
  10. VITAMINE A [Concomitant]
     Indication: DRUG USE FOR UNKNOWN INDICATION
  11. ACUPAN [Concomitant]
     Indication: DRUG USE FOR UNKNOWN INDICATION
  12. LOVENOX [Concomitant]
     Indication: DRUG USE FOR UNKNOWN INDICATION
  13. DIPRIVAN [Concomitant]
     Indication: DRUG USE FOR UNKNOWN INDICATION
  14. ALBUMIN (HUMAN) [Concomitant]
     Indication: DRUG USE FOR UNKNOWN INDICATION
  15. HYDROCORTISONE [Concomitant]
     Indication: DRUG USE FOR UNKNOWN INDICATION
  16. VOLUVEN                            /00375601/ [Concomitant]
     Indication: DRUG USE FOR UNKNOWN INDICATION

REACTIONS (3)
  - DRUG ERUPTION [None]
  - ERYTHEMA [None]
  - PRURITUS [None]
